APPROVED DRUG PRODUCT: FLUVASTATIN SODIUM
Active Ingredient: FLUVASTATIN SODIUM
Strength: EQ 40MG BASE
Dosage Form/Route: CAPSULE;ORAL
Application: A090595 | Product #002 | TE Code: AB
Applicant: MYLAN PHARMACEUTICALS INC.
Approved: Apr 11, 2012 | RLD: No | RS: Yes | Type: RX